FAERS Safety Report 7450368-7 (Version None)
Quarter: 2011Q2

REPORT INFORMATION
  Report Type: 
  Country: None (occurrence: None)
  Receive Date: 20110502
  Receipt Date: 20110421
  Transmission Date: 20111010
  Serious: Yes (Other)
  Sender: FDA-Public Use
  Company Number: JP-SANOFI-AVENTIS-2011SA025789

PATIENT
  Sex: Male

DRUGS (1)
  1. MYSLEE [Suspect]
     Route: 048
     Dates: start: 20110417, end: 20110419

REACTIONS (3)
  - LOSS OF CONSCIOUSNESS [None]
  - ABNORMAL BEHAVIOUR [None]
  - DELIRIUM [None]
